FAERS Safety Report 12924987 (Version 1)
Quarter: 2016Q4

REPORT INFORMATION
  Report Type: Spontaneous
  Country: US (occurrence: US)
  Receive Date: 20161109
  Receipt Date: 20161109
  Transmission Date: 20170207
  Serious: Yes (Hospitalization, Other)
  Sender: FDA-Public Use
  Company Number: US-AMNEAL PHARMACEUTICALS-2016AMN00683

PATIENT
  Sex: Male

DRUGS (3)
  1. BUPRENORPHINE. [Suspect]
     Active Substance: BUPRENORPHINE
     Dosage: UNK
     Dates: end: 20160922
  2. FLEXURAL [Suspect]
     Active Substance: CYCLOBENZAPRINE
     Dosage: UNK
     Dates: end: 20160922
  3. BUPRENORPHINE AND NALOXONE [Suspect]
     Active Substance: BUPRENORPHINE\NALOXONE
     Dosage: UNK
     Dates: end: 20160922

REACTIONS (5)
  - Irregular breathing [Unknown]
  - Loss of consciousness [Recovered/Resolved]
  - Cyanosis central [Recovered/Resolved]
  - Overdose [Recovered/Resolved]
  - Tremor [Unknown]

NARRATIVE: CASE EVENT DATE: 20160922
